FAERS Safety Report 19847548 (Version 1)
Quarter: 2021Q3

REPORT INFORMATION
  Report Type: Spontaneous
  Country: DE (occurrence: DE)
  Receive Date: 20210917
  Receipt Date: 20210917
  Transmission Date: 20211014
  Serious: Yes (Hospitalization)
  Sender: FDA-Public Use
  Company Number: DE-TEVA-2021-DE-1951968

PATIENT
  Age: 85 Year
  Sex: Female

DRUGS (13)
  1. BISOPROLOL [Concomitant]
     Active Substance: BISOPROLOL
     Dosage: 5 MILLIGRAM DAILY; SUSTAINED?RELEASE TABLETS
     Route: 048
  2. LEVETIRACETAM. [Concomitant]
     Active Substance: LEVETIRACETAM
     Dosage: 750 MG, 1?0?1?0:UNIT DOSE:1500MILLIGRAM
     Route: 048
  3. CLOPIDOGREL [Concomitant]
     Active Substance: CLOPIDOGREL BISULFATE
     Dosage: 75 MILLIGRAM DAILY; 0?1?0?0
     Route: 048
  4. PANTOPRAZOL [Concomitant]
     Active Substance: PANTOPRAZOLE SODIUM
     Dosage: 20 MILLIGRAM DAILY; 1?0?0?0
     Route: 048
  5. TILIDINE/NALOXON [Concomitant]
     Dosage: 1 DOSAGE FORMS DAILY; 8 | 100 MG, 1?0?0?0
     Route: 048
  6. NITRENDIPINE [Concomitant]
     Active Substance: NITRENDIPINE
     Dosage: 5 MG / ML, IF NECESSARY
     Route: 048
  7. CANDESARTAN. [Concomitant]
     Active Substance: CANDESARTAN
     Dosage: 8 MG, 1?0?1?0UNIT DOSE:16MILLIGRAM
     Route: 048
  8. ACETYLSALICYLSAEURE [Concomitant]
     Active Substance: ASPIRIN
     Dosage: 100 MILLIGRAM DAILY; 0?1?0?0
     Route: 048
  9. FINGOLIMOD. [Suspect]
     Active Substance: FINGOLIMOD
     Route: 065
  10. RISPERIDON [Concomitant]
     Active Substance: RISPERIDONE
     Dosage: 0.5 MG, 1?0?1?0:UNIT DOSE:1MILLIGRAM
     Route: 048
  11. CARBIMAZOL [Concomitant]
     Active Substance: CARBIMAZOLE
     Dosage: 10 MILLIGRAM DAILY; 1?0?0?0
     Route: 048
  12. TORASEMID [Concomitant]
     Active Substance: TORSEMIDE
     Dosage: 10 MILLIGRAM DAILY; 1?0?0?0
     Route: 048
  13. LERCANIDIPIN [Concomitant]
     Active Substance: LERCANIDIPINE
     Dosage: 5 MILLIGRAM DAILY; 0?0?1?0
     Route: 048

REACTIONS (5)
  - Haematuria [Unknown]
  - Urinary tract infection [Unknown]
  - Dysuria [Unknown]
  - Lymphopenia [Unknown]
  - Pyrexia [Unknown]
